FAERS Safety Report 16190750 (Version 1)
Quarter: 2019Q2

REPORT INFORMATION
  Report Type: Report from Study
  Country: CO (occurrence: CO)
  Receive Date: 20190412
  Receipt Date: 20190412
  Transmission Date: 20190711
  Serious: Yes (Other)
  Sender: FDA-Public Use
  Company Number: CO-SEATTLE GENETICS-2019SGN01077

PATIENT
  Age: 37 Year
  Sex: Female
  Weight: 72 kg

DRUGS (2)
  1. BRENTUXIMAB VEDOTIN-MPI [Suspect]
     Active Substance: BRENTUXIMAB VEDOTIN
     Indication: HODGKIN^S DISEASE
     Dosage: 50 MG, UNK
     Route: 042
     Dates: start: 20181028
  2. ENOXAPARIN SODIUM. [Concomitant]
     Active Substance: ENOXAPARIN SODIUM
     Indication: SUPERIOR VENA CAVA SYNDROME
     Dosage: 120 MILLIGRAM, QD
     Route: 058
     Dates: start: 20170601

REACTIONS (2)
  - Weight increased [Unknown]
  - Cholelithiasis [Unknown]

NARRATIVE: CASE EVENT DATE: 201810
